FAERS Safety Report 13781076 (Version 1)
Quarter: 2017Q3

REPORT INFORMATION
  Report Type: Spontaneous
  Country: US (occurrence: US)
  Receive Date: 20170722
  Receipt Date: 20170722
  Transmission Date: 20171127
  Serious: No
  Sender: FDA-Public Use
  Company Number: None

PATIENT
  Age: 28 Year
  Sex: Female
  Weight: 56.25 kg

DRUGS (1)
  1. ICY HOT MEDICATED NO MESS APPLICATOR [Suspect]
     Active Substance: MENTHOL
     Indication: BACK PAIN
     Dosage: ?          OTHER STRENGTH:ML;?
     Route: 061
     Dates: start: 20170722, end: 20170722

REACTIONS (2)
  - Application site pain [None]
  - Application site erythema [None]

NARRATIVE: CASE EVENT DATE: 20170722
